FAERS Safety Report 7951209-1 (Version None)
Quarter: 2011Q4

REPORT INFORMATION
  Report Type: 
  Country: None (occurrence: None)
  Receive Date: 20111201
  Receipt Date: 20111128
  Transmission Date: 20120403
  Serious: Yes (Life-Threatening, Hospitalization)
  Sender: FDA-Public Use
  Company Number: PHHY2011BR104180

PATIENT
  Age: 72 Year
  Sex: Female

DRUGS (1)
  1. EXELON [Suspect]
     Indication: DEMENTIA ALZHEIMER'S TYPE
     Dosage: 13.3 MG DAILY (27MG/15CM2)
     Route: 062
     Dates: start: 20110201, end: 20111103

REACTIONS (6)
  - HYPERTENSION [None]
  - LEFT VENTRICULAR DYSFUNCTION [None]
  - ACUTE PULMONARY OEDEMA [None]
  - CHEST PAIN [None]
  - BUNDLE BRANCH BLOCK LEFT [None]
  - CARDIAC DISORDER [None]
